FAERS Safety Report 10270717 (Version 2)
Quarter: 2014Q3

REPORT INFORMATION
  Report Type: Spontaneous
  Country: US (occurrence: US)
  Receive Date: 20140701
  Receipt Date: 20140718
  Transmission Date: 20150326
  Serious: Yes (Other)
  Sender: FDA-Public Use
  Company Number: US-PFIZER INC-2014176633

PATIENT
  Sex: Male

DRUGS (2)
  1. NEURONTIN [Suspect]
     Active Substance: GABAPENTIN
     Dosage: 300 MG, UNK
  2. GLUCOTROL XL [Suspect]
     Active Substance: GLIPIZIDE
     Dosage: 5 MG, UNK

REACTIONS (2)
  - Hypoxia [Unknown]
  - Malaise [Unknown]
